FAERS Safety Report 7053177-6 (Version None)
Quarter: 2010Q4

REPORT INFORMATION
  Report Type: 
  Country: None (occurrence: None)
  Receive Date: 20101020
  Receipt Date: 20101011
  Transmission Date: 20110411
  Serious: Yes (Hospitalization)
  Sender: FDA-Public Use
  Company Number: KR-ASTRAZENECA-2010SE47857

PATIENT
  Age: 28 Year
  Sex: Female

DRUGS (3)
  1. CRESTOR [Suspect]
     Indication: HYPERLIPIDAEMIA
     Route: 048
     Dates: start: 20050428
  2. BEECOM [Concomitant]
     Indication: MEDICAL DIET
  3. PHOSLO [Concomitant]
     Indication: MINERAL SUPPLEMENTATION

REACTIONS (1)
  - TENDON RUPTURE [None]
